FAERS Safety Report 24183600 (Version 1)
Quarter: 2024Q3

REPORT INFORMATION
  Report Type: Spontaneous
  Country: CN (occurrence: CN)
  Receive Date: 20240807
  Receipt Date: 20240807
  Transmission Date: 20241016
  Serious: Yes (Hospitalization)
  Sender: SANDOZ
  Company Number: CN-SANDOZ-SDZ2024CN021450

PATIENT

DRUGS (11)
  1. ASPIRIN [Suspect]
     Active Substance: ASPIRIN
     Dosage: 150 MG, QD
     Route: 048
  2. ASPIRIN [Suspect]
     Active Substance: ASPIRIN
     Indication: Product used for unknown indication
     Dosage: 300 MG
     Route: 048
  3. ISOSORBIDE DINITRATE [Suspect]
     Active Substance: ISOSORBIDE DINITRATE
     Indication: Product used for unknown indication
     Dosage: 3 DOSES, STARTING DOSE OF 5 MG/H
     Route: 042
  4. ISOSORBIDE DINITRATE [Suspect]
     Active Substance: ISOSORBIDE DINITRATE
     Dosage: 10 MG/H AFTER 5 MINUTES
     Route: 042
  5. ISOSORBIDE DINITRATE [Suspect]
     Active Substance: ISOSORBIDE DINITRATE
     Dosage: 15 MG/H AFTER ANOTHER 5 MINUTES
     Route: 042
  6. METOPROLOL TARTRATE [Suspect]
     Active Substance: METOPROLOL TARTRATE
     Indication: Product used for unknown indication
     Dosage: 3 DOSES, AT A DOSE OF 5 MG/TIME, WITH AN INTERVAL OF 5 MINUTES BETWEEN DOSES
     Route: 041
  7. PERINDOPRIL [Suspect]
     Active Substance: PERINDOPRIL
     Indication: Product used for unknown indication
     Dosage: 2-4 MG/DAY
     Route: 048
  8. PERINDOPRIL [Suspect]
     Active Substance: PERINDOPRIL
     Dosage: 4-8 MG/DAY
     Route: 048
  9. LOSARTAN [Suspect]
     Active Substance: LOSARTAN\LOSARTAN POTASSIUM
     Indication: Myocardial infarction
     Dosage: 25 MG, QD
     Route: 048
  10. LOSARTAN [Suspect]
     Active Substance: LOSARTAN\LOSARTAN POTASSIUM
     Dosage: 50-75 MG/DAY
     Route: 048
  11. ATORVASTATIN CALCIUM [Suspect]
     Active Substance: ATORVASTATIN CALCIUM
     Indication: Myocardial infarction
     Dosage: 40 MG, QD
     Route: 048

REACTIONS (3)
  - Gastrointestinal disorder [Unknown]
  - Asthenia [Unknown]
  - Liver function test abnormal [Unknown]
